FAERS Safety Report 5255473-1 (Version None)
Quarter: 2007Q1

REPORT INFORMATION
  Report Type: 
  Country: None (occurrence: None)
  Receive Date: 20061201
  Receipt Date: 20061013
  Transmission Date: 20070707
  Serious: No
  Sender: FDA-Public Use
  Company Number: 2006MP001183

PATIENT
  Sex: Male

DRUGS (2)
  1. DACOGEN [Suspect]
     Indication: MYELODYSPLASTIC SYNDROME
     Dosage: IV
     Route: 042
     Dates: start: 20060101
  2. THALIDOMIDE [Concomitant]

REACTIONS (1)
  - DRUG INEFFECTIVE [None]
